FAERS Safety Report 9125121 (Version 1)
Quarter: 2013Q1

REPORT INFORMATION
  Report Type: Spontaneous
  Country: US (occurrence: US)
  Receive Date: 20130121
  Receipt Date: 20130121
  Transmission Date: 20140127
  Serious: Yes (Hospitalization)
  Sender: FDA-Public Use
  Company Number: PHHY2012US084223

PATIENT
  Sex: Female
  Weight: 79.18 kg

DRUGS (11)
  1. METOPROLOL [Suspect]
     Indication: HYPERTENSION
     Dosage: 100 MG, BID
     Route: 048
  2. DIOVAN HCT [Concomitant]
     Dosage: UNK
  3. PLAVIX [Concomitant]
     Dosage: UNK
  4. FUROSEMIDE [Concomitant]
  5. SIMVASTATIN [Concomitant]
     Dosage: UNK
  6. LISINOPRIL [Concomitant]
     Dosage: UNK
  7. HUMULIN R [Concomitant]
     Dosage: UNK
  8. HUMULIN N [Concomitant]
     Dosage: UNK
  9. LEVOTHYROXINE SODIUM [Concomitant]
     Dosage: UNK
  10. NITROGLYCERIN [Concomitant]
     Dosage: UNK
  11. NITROSTAT [Concomitant]
     Dosage: UNK

REACTIONS (4)
  - Angina pectoris [Unknown]
  - Hypertension [Unknown]
  - Local swelling [Unknown]
  - Drug ineffective [Unknown]
